FAERS Safety Report 7474826-4 (Version None)
Quarter: 2011Q2

REPORT INFORMATION
  Report Type: 
  Country: None (occurrence: None)
  Receive Date: 20110512
  Receipt Date: 20110408
  Transmission Date: 20111010
  Serious: Yes (Hospitalization, Other)
  Sender: FDA-Public Use
  Company Number: US-BAYER-201010779NA

PATIENT
  Age: 17 Year
  Sex: Female
  Weight: 58.957 kg

DRUGS (4)
  1. IBUPROFEN [Concomitant]
  2. YAZ [Suspect]
     Indication: ACNE
  3. AMOXICILLIN [Concomitant]
  4. YAZ [Suspect]
     Indication: ORAL CONTRACEPTION
     Dosage: UNK UNK, QD
     Route: 048
     Dates: start: 20080701, end: 20100101

REACTIONS (4)
  - CHOLECYSTECTOMY [None]
  - CHOLECYSTITIS ACUTE [None]
  - PAIN [None]
  - EMOTIONAL DISTRESS [None]
